FAERS Safety Report 7963037-1 (Version None)
Quarter: 2011Q4

REPORT INFORMATION
  Report Type: 
  Country: None (occurrence: None)
  Receive Date: 20111207
  Receipt Date: 20111130
  Transmission Date: 20120403
  Serious: Yes (Hospitalization)
  Sender: FDA-Public Use
  Company Number: GB-AMGEN-GBRSP2011063379

PATIENT
  Age: 69 Year
  Sex: Female

DRUGS (10)
  1. PREDNISOLONE [Concomitant]
     Indication: SARCOIDOSIS
     Dosage: 15 MG, QD
     Route: 048
     Dates: start: 20050101
  2. TRIMETHOPRIM [Concomitant]
     Indication: PROPHYLAXIS URINARY TRACT INFECTION
     Dosage: 100 MG, QD
     Route: 048
  3. FUROSEMIDE [Concomitant]
     Dosage: 40 MG, UNK
  4. PEPTAC                             /00550802/ [Concomitant]
     Dosage: 10 MG, UNK
  5. ATORVASTATIN [Concomitant]
     Indication: MYOCARDIAL ISCHAEMIA
     Dosage: 80 MG, QD
     Dates: start: 20090101
  6. ASPIRIN [Concomitant]
     Dosage: 75 MG, UNK
  7. PROCHLORPERAZINE [Concomitant]
     Indication: NAUSEA
     Dosage: 5 MG, Q8H
     Route: 048
  8. OMEPRAZOLE [Concomitant]
     Dosage: 20 UNK, UNK
  9. CHLOROQUINE DIPHOSPHATE [Suspect]
     Indication: SARCOIDOSIS
     Dosage: 250 MG, QD
     Route: 048
     Dates: start: 20050101
  10. PROLIA [Suspect]
     Indication: OSTEOPOROSIS
     Dosage: 60 MG, Q4MO
     Route: 058
     Dates: start: 20111116, end: 20111116

REACTIONS (10)
  - ATRIOVENTRICULAR BLOCK COMPLETE [None]
  - ACUTE MYOCARDIAL INFARCTION [None]
  - ESCHERICHIA SEPSIS [None]
  - GENERAL PHYSICAL HEALTH DETERIORATION [None]
  - BLOOD GLUCOSE INCREASED [None]
  - CARDIAC ARREST [None]
  - ACUTE HEPATIC FAILURE [None]
  - RENAL FAILURE ACUTE [None]
  - WHITE BLOOD CELL COUNT INCREASED [None]
  - BLOOD BICARBONATE DECREASED [None]
